FAERS Safety Report 5050384-9 (Version None)
Quarter: 2006Q2

REPORT INFORMATION
  Report Type: 
  Country: None (occurrence: None)
  Receive Date: 20060614
  Receipt Date: 20060303
  Transmission Date: 20061013
  Serious: Yes (Other)
  Sender: FDA-Public Use
  Company Number: 428159

PATIENT
  Age: 78 Year
  Sex: Female
  Weight: 61.7 kg

DRUGS (3)
  1. BONIVA [Suspect]
     Indication: DRUG USE FOR UNKNOWN INDICATION
     Dates: start: 20051015, end: 20051203
  2. SYNTHROID [Concomitant]
  3. OCUVITE (ALPHA-TOCOPHEROL/ASCORBIC ACID/CUIVRE/SELENIUM/VITAMIN A/ZINC [Concomitant]

REACTIONS (2)
  - ABDOMINAL PAIN UPPER [None]
  - ALOPECIA [None]
